APPROVED DRUG PRODUCT: IDARUBICIN HYDROCHLORIDE
Active Ingredient: IDARUBICIN HYDROCHLORIDE
Strength: 5MG/5ML (1MG/ML)
Dosage Form/Route: SOLUTION;INTRAVENOUS
Application: A200144 | Product #001
Applicant: RISING PHARMA HOLDINGS INC
Approved: Oct 11, 2012 | RLD: No | RS: No | Type: DISCN